FAERS Safety Report 8618813-9 (Version None)
Quarter: 2012Q3

REPORT INFORMATION
  Report Type: 
  Country: None (occurrence: None)
  Receive Date: 20120824
  Receipt Date: 20120815
  Transmission Date: 20120928
  Serious: Yes (Hospitalization, Other)
  Sender: FDA-Public Use
  Company Number: US-JNJFOC-20120811002

PATIENT
  Age: 55 Year
  Sex: Male
  Weight: 118 kg

DRUGS (6)
  1. MOTRIN [Suspect]
     Indication: PAIN IN EXTREMITY
     Dosage: UNKNOWN DOSE, 6 TIMES A DAY
     Route: 065
     Dates: start: 20090101
  2. FLUTICASONE PROPIONATE [Suspect]
     Indication: CHRONIC OBSTRUCTIVE PULMONARY DISEASE
     Route: 065
     Dates: end: 20101201
  3. AN UNKNOWN MEDICATION [Suspect]
     Indication: CHRONIC OBSTRUCTIVE PULMONARY DISEASE
     Route: 045
  4. MOTRIN [Suspect]
     Indication: ARTHRALGIA
     Dosage: UNKNOWN DOSE, 6 TIMES A DAY
     Route: 065
     Dates: start: 20090101
  5. MOTRIN [Suspect]
     Indication: BACK PAIN
     Dosage: UNKNOWN DOSE, 6 TIMES A DAY
     Route: 065
     Dates: start: 20090101
  6. MOTRIN [Suspect]
     Dosage: UNKNOWN DOSE, 6 TIMES A DAY
     Route: 065
     Dates: start: 20090101

REACTIONS (5)
  - BLOOD POTASSIUM DECREASED [None]
  - ADVERSE EVENT [None]
  - RENAL IMPAIRMENT [None]
  - WEIGHT DECREASED [None]
  - DEHYDRATION [None]
